FAERS Safety Report 19865182 (Version 1)
Quarter: 2021Q3

REPORT INFORMATION
  Report Type: Spontaneous
  Country: QA (occurrence: QA)
  Receive Date: 20210922
  Receipt Date: 20210922
  Transmission Date: 20211014
  Serious: Yes (Hospitalization, Other)
  Sender: FDA-Public Use
  Company Number: QA-BRISTOL-MYERS SQUIBB COMPANY-BMS-2021-092697

PATIENT
  Age: 67 Year
  Sex: Male

DRUGS (1)
  1. NIVOLUMAB [Suspect]
     Active Substance: NIVOLUMAB
     Indication: TESTIS CANCER
     Route: 065

REACTIONS (5)
  - Hyperglycaemic hyperosmolar nonketotic syndrome [Unknown]
  - Acute kidney injury [Unknown]
  - Intentional product use issue [Unknown]
  - Type 1 diabetes mellitus [Unknown]
  - Diabetic ketoacidosis [Unknown]
